FAERS Safety Report 13407222 (Version 7)
Quarter: 2017Q4

REPORT INFORMATION
  Report Type: Report from Study
  Country: US (occurrence: US)
  Receive Date: 20170405
  Receipt Date: 20171120
  Transmission Date: 20180320
  Serious: Yes (Death, Hospitalization)
  Sender: FDA-Public Use
  Company Number: US-ACTELION-A-NJ2017-148328

PATIENT
  Age: 45 Year
  Sex: Female
  Weight: 58.5 kg

DRUGS (5)
  1. VELETRI [Suspect]
     Active Substance: EPOPROSTENOL
     Indication: PULMONARY ARTERIAL HYPERTENSION
     Dosage: 50 NG/KG, PER MIN
     Route: 042
     Dates: start: 20141116, end: 20171014
  2. VELETRI [Suspect]
     Active Substance: EPOPROSTENOL
     Dosage: 44 NG/KG, PER MIN
     Route: 042
  3. LETAIRIS [Concomitant]
     Active Substance: AMBRISENTAN
     Dosage: 10 MG, QD
     Dates: start: 200806
  4. VELETRI [Suspect]
     Active Substance: EPOPROSTENOL
     Dosage: UNK
     Route: 042
     Dates: start: 20141201
  5. ADCIRCA [Concomitant]
     Active Substance: TADALAFIL
     Dosage: 40 MG, QD
     Dates: start: 201301

REACTIONS (10)
  - Renal failure [Unknown]
  - Weight increased [Unknown]
  - Fluid overload [Unknown]
  - Device breakage [Unknown]
  - Ascites [Unknown]
  - Disease progression [Fatal]
  - Cardiac failure congestive [Unknown]
  - Dyspnoea [Unknown]
  - Right ventricular failure [Fatal]
  - Pulmonary hypertension [Fatal]
